FAERS Safety Report 18874160 (Version 1)
Quarter: 2021Q1

REPORT INFORMATION
  Report Type: Spontaneous
  Country: DE (occurrence: DE)
  Receive Date: 20210210
  Receipt Date: 20210210
  Transmission Date: 20210420
  Serious: Yes (Other)
  Sender: FDA-Public Use
  Company Number: DE-TEVA-2021-DE-1867843

PATIENT
  Age: 64 Year
  Sex: Female

DRUGS (1)
  1. DICLO?RATIOPHARM SCHMERZGEL [Suspect]
     Active Substance: DICLOFENAC
     Indication: BACK PAIN
     Dosage: ONCE OVERNIGHT
     Route: 061
     Dates: start: 20201221, end: 20201221

REACTIONS (5)
  - Burns third degree [Not Recovered/Not Resolved]
  - Thermal burn [Not Recovered/Not Resolved]
  - Pain [Not Recovered/Not Resolved]
  - Skin reaction [Not Recovered/Not Resolved]
  - Skin lesion [Not Recovered/Not Resolved]

NARRATIVE: CASE EVENT DATE: 20201221
